FAERS Safety Report 19929055 (Version 1)
Quarter: 2021Q4

REPORT INFORMATION
  Report Type: Spontaneous
  Country: US (occurrence: US)
  Receive Date: 20211007
  Receipt Date: 20211007
  Transmission Date: 20220303
  Serious: No
  Sender: FDA-Public Use
  Company Number: US-RECORDATI RARE DISEASES-US-R13005-20-00097

PATIENT
  Age: 50 Year
  Sex: Female

DRUGS (1)
  1. PANHEMATIN [Suspect]
     Active Substance: HEMIN
     Indication: Porphyria
     Dosage: 210 MILLIGRAM, UNK, INJECTION
     Route: 042

REACTIONS (2)
  - Vascular device occlusion [Unknown]
  - Therapeutic product effect decreased [Unknown]
